FAERS Safety Report 9506694 (Version 1)
Quarter: 2013Q3

REPORT INFORMATION
  Report Type: Spontaneous
  Country: US (occurrence: None)
  Receive Date: 20130905
  Receipt Date: 20130905
  Transmission Date: 20140515
  Serious: No
  Sender: FDA-Public Use
  Company Number: None

PATIENT
  Age: 55 Year
  Sex: Male
  Weight: 107.7 kg

DRUGS (3)
  1. ELOXATIN [Suspect]
  2. 5-FLUOROURACIL [Suspect]
  3. BEVACIZUMAB [Suspect]

REACTIONS (1)
  - Peripheral sensory neuropathy [None]
